FAERS Safety Report 8095363-2 (Version None)
Quarter: 2012Q1

REPORT INFORMATION
  Report Type: 
  Country: None (occurrence: None)
  Receive Date: 20120125
  Receipt Date: 20120110
  Transmission Date: 20120608
  Serious: Yes (Hospitalization, Other)
  Sender: FDA-Public Use
  Company Number: 2011SP035870

PATIENT
  Age: 23 Year
  Sex: Female
  Weight: 86.1834 kg

DRUGS (2)
  1. NUVARING [Suspect]
     Indication: CONTRACEPTION
     Dates: start: 20080701, end: 20090805
  2. NUVARING [Suspect]
     Indication: MENSTRUAL DISORDER
     Dates: start: 20080701, end: 20090805

REACTIONS (34)
  - BEDRIDDEN [None]
  - DEPRESSION [None]
  - PULMONARY INFARCTION [None]
  - VAGINAL HAEMORRHAGE [None]
  - DISCOMFORT [None]
  - TRICUSPID VALVE INCOMPETENCE [None]
  - SLEEP APNOEA SYNDROME [None]
  - PAIN IN EXTREMITY [None]
  - MITRAL VALVE INCOMPETENCE [None]
  - NERVE INJURY [None]
  - MUSCLE SPASMS [None]
  - HYPERPLASTIC CHOLECYSTOPATHY [None]
  - PULMONARY EMBOLISM [None]
  - DEEP VEIN THROMBOSIS [None]
  - ASTHMA [None]
  - MIGRAINE [None]
  - EAR DISORDER [None]
  - EJECTION FRACTION DECREASED [None]
  - SINUS DISORDER [None]
  - PROTEUS TEST POSITIVE [None]
  - TONSILLITIS [None]
  - HAEMANGIOMA OF LIVER [None]
  - RENAL DISORDER [None]
  - BACK INJURY [None]
  - VISION BLURRED [None]
  - ACTIVATED PARTIAL THROMBOPLASTIN TIME PROLONGED [None]
  - OVARIAN CYST [None]
  - CARDIOVASCULAR DISORDER [None]
  - PARAESTHESIA ORAL [None]
  - HYPOAESTHESIA ORAL [None]
  - VERTIGO [None]
  - DIZZINESS [None]
  - CHOLELITHIASIS [None]
  - NASAL SEPTUM DEVIATION [None]
